FAERS Safety Report 19449187 (Version 4)
Quarter: 2021Q3

REPORT INFORMATION
  Report Type: Spontaneous
  Country: US (occurrence: US)
  Receive Date: 20210622
  Receipt Date: 20210923
  Transmission Date: 20211014
  Serious: No
  Sender: FDA-Public Use
  Company Number: US-GLAXOSMITHKLINE-US2021AMR134350

PATIENT
  Sex: Female

DRUGS (2)
  1. ZEJULA [Suspect]
     Active Substance: NIRAPARIB
     Dosage: 200 MG, QD
  2. ZEJULA [Suspect]
     Active Substance: NIRAPARIB
     Indication: PRODUCT USED FOR UNKNOWN INDICATION
     Dosage: 300 MG, QD

REACTIONS (10)
  - Decreased appetite [Unknown]
  - Nausea [Unknown]
  - Neutrophil count decreased [Unknown]
  - Platelet count decreased [Recovered/Resolved]
  - Fall [Unknown]
  - Sleep disorder [Unknown]
  - Feeding disorder [Recovered/Resolved]
  - Tremor [Unknown]
  - White blood cell count decreased [Not Recovered/Not Resolved]
  - Asthenia [Recovered/Resolved]
